FAERS Safety Report 7383744-1 (Version None)
Quarter: 2011Q1

REPORT INFORMATION
  Report Type: 
  Country: None (occurrence: None)
  Receive Date: 20110330
  Receipt Date: 20110328
  Transmission Date: 20110831
  Serious: Yes (Hospitalization)
  Sender: FDA-Public Use
  Company Number: CO-ROCHE-767928

PATIENT
  Sex: Male

DRUGS (1)
  1. CELLCEPT [Suspect]
     Route: 048
     Dates: start: 20040301

REACTIONS (1)
  - TRANSPLANT REJECTION [None]
